FAERS Safety Report 5989532-2 (Version None)
Quarter: 2008Q4

REPORT INFORMATION
  Report Type: 
  Country: None (occurrence: None)
  Receive Date: 20081208
  Receipt Date: 20081120
  Transmission Date: 20090506
  Serious: Yes (Hospitalization)
  Sender: FDA-Public Use
  Company Number: 2008US003209

PATIENT
  Age: 54 Year
  Sex: Female

DRUGS (12)
  1. PROGRAF [Suspect]
     Indication: LIVER TRANSPLANT
     Dosage: 1 MG, BID
     Dates: start: 20080120
  2. ENTECAVIR(ENTECAVIR) [Suspect]
     Indication: HEPATITIS B
     Dosage: 1 MG UID/QD
     Dates: start: 20080211
  3. CELLCEPT (MYOCPHENOLATE MOFETIL) [Concomitant]
  4. PROTONIX [Concomitant]
  5. VALCYTE [Concomitant]
  6. URSO 250 [Concomitant]
  7. NORVASC [Concomitant]
  8. NYSATIN [Concomitant]
  9. BACTRIM [Concomitant]
  10. MAGNESIUM OXIDE [Concomitant]
  11. PERCOCET [Concomitant]
  12. PREDNISONE [Suspect]
     Indication: LIVER TRANSPLANT
     Dosage: 12.5 MG

REACTIONS (3)
  - BILE DUCT OBSTRUCTION [None]
  - CHOLANGITIS ACUTE [None]
  - DIABETES MELLITUS [None]
